FAERS Safety Report 4374288-X (Version None)
Quarter: 2004Q2

REPORT INFORMATION
  Report Type: 
  Country: None (occurrence: None)
  Receive Date: 20040602
  Receipt Date: 20040409
  Transmission Date: 20050107
  Serious: No
  Sender: FDA-Public Use
  Company Number: 200417565BWH

PATIENT
  Age: 42 Year
  Sex: Male
  Weight: 87.9978 kg

DRUGS (2)
  1. LEVITRA [Suspect]
     Indication: ERECTILE DYSFUNCTION
     Dosage: 10 MG, OW, ORAL
     Route: 048
     Dates: start: 20040401
  2. VIAGRA [Concomitant]

REACTIONS (4)
  - DIZZINESS [None]
  - FEELING DRUNK [None]
  - HEADACHE [None]
  - VISION BLURRED [None]
